FAERS Safety Report 6859098-3 (Version None)
Quarter: 2010Q3

REPORT INFORMATION
  Report Type: 
  Country: None (occurrence: None)
  Receive Date: 20100719
  Receipt Date: 20080222
  Transmission Date: 20110219
  Serious: No
  Sender: FDA-Public Use
  Company Number: US-PFIZER INC-2008019140

PATIENT
  Sex: Female

DRUGS (3)
  1. CHANTIX [Suspect]
     Indication: SMOKING CESSATION THERAPY
     Route: 048
     Dates: start: 20080217
  2. LEXAPRO [Concomitant]
     Indication: DEPRESSION
  3. PREVACID [Concomitant]
     Indication: ABDOMINAL DISCOMFORT

REACTIONS (4)
  - DEPRESSION [None]
  - HEAD DISCOMFORT [None]
  - HEADACHE [None]
  - INCORRECT DOSE ADMINISTERED [None]
